FAERS Safety Report 19920424 (Version 2)
Quarter: 2025Q4

REPORT INFORMATION
  Report Type: Spontaneous
  Country: AU (occurrence: AU)
  Receive Date: 20211005
  Receipt Date: 20251020
  Transmission Date: 20260117
  Serious: Yes (Other)
  Sender: MYLAN
  Company Number: AU-MYLANLABS-2021M1068556

PATIENT
  Sex: Male

DRUGS (24)
  1. CLOZARIL [Suspect]
     Active Substance: CLOZAPINE
     Indication: Schizophrenia
     Dosage: BID (50MG MANE, 250MG NOCTE)
     Dates: start: 20210906
  2. CLOZARIL [Suspect]
     Active Substance: CLOZAPINE
     Dosage: BID (50MG MANE, 250MG NOCTE)
     Dates: start: 20210906
  3. CLOZARIL [Suspect]
     Active Substance: CLOZAPINE
     Dosage: BID (50MG MANE, 250MG NOCTE)
     Route: 048
     Dates: start: 20210906
  4. CLOZARIL [Suspect]
     Active Substance: CLOZAPINE
     Dosage: BID (50MG MANE, 250MG NOCTE)
     Route: 048
     Dates: start: 20210906
  5. CLOZARIL [Suspect]
     Active Substance: CLOZAPINE
     Dosage: UNK (LOW DOSE OF AROUND 31.25 MG)
  6. CLOZARIL [Suspect]
     Active Substance: CLOZAPINE
     Dosage: UNK (LOW DOSE OF AROUND 31.25 MG)
  7. CLOZARIL [Suspect]
     Active Substance: CLOZAPINE
     Dosage: UNK (LOW DOSE OF AROUND 31.25 MG)
     Route: 048
  8. CLOZARIL [Suspect]
     Active Substance: CLOZAPINE
     Dosage: UNK (LOW DOSE OF AROUND 31.25 MG)
     Route: 048
  9. CLOZARIL [Suspect]
     Active Substance: CLOZAPINE
     Dosage: UNK
     Dates: start: 20250917, end: 20251001
  10. CLOZARIL [Suspect]
     Active Substance: CLOZAPINE
     Dosage: UNK
     Route: 048
     Dates: start: 20250917, end: 20251001
  11. CLOZARIL [Suspect]
     Active Substance: CLOZAPINE
     Dosage: UNK
     Dates: start: 20250917, end: 20251001
  12. CLOZARIL [Suspect]
     Active Substance: CLOZAPINE
     Dosage: UNK
     Route: 048
     Dates: start: 20250917, end: 20251001
  13. BRIVARACETAM [Concomitant]
     Active Substance: BRIVARACETAM
     Indication: Epilepsy
     Dosage: UNK
  14. BRIVARACETAM [Concomitant]
     Active Substance: BRIVARACETAM
     Dosage: UNK
     Route: 065
  15. BRIVARACETAM [Concomitant]
     Active Substance: BRIVARACETAM
     Dosage: UNK
     Route: 065
  16. BRIVARACETAM [Concomitant]
     Active Substance: BRIVARACETAM
     Dosage: UNK
  17. TOPIRAMATE [Concomitant]
     Active Substance: TOPIRAMATE
     Indication: Epilepsy
     Dosage: UNK
  18. TOPIRAMATE [Concomitant]
     Active Substance: TOPIRAMATE
     Dosage: UNK
     Route: 065
  19. TOPIRAMATE [Concomitant]
     Active Substance: TOPIRAMATE
     Dosage: UNK
     Route: 065
  20. TOPIRAMATE [Concomitant]
     Active Substance: TOPIRAMATE
     Dosage: UNK
  21. VALPROATE [Concomitant]
     Active Substance: VALPROIC ACID
     Indication: Epilepsy
     Dosage: UNK
  22. VALPROATE [Concomitant]
     Active Substance: VALPROIC ACID
     Dosage: UNK
     Route: 065
  23. VALPROATE [Concomitant]
     Active Substance: VALPROIC ACID
     Dosage: UNK
     Route: 065
  24. VALPROATE [Concomitant]
     Active Substance: VALPROIC ACID
     Dosage: UNK

REACTIONS (5)
  - Troponin increased [Unknown]
  - Dyspnoea [Unknown]
  - Myocarditis [Unknown]
  - Chest pain [Unknown]
  - C-reactive protein increased [Unknown]
